FAERS Safety Report 6703022-0 (Version None)
Quarter: 2010Q2

REPORT INFORMATION
  Report Type: 
  Country: None (occurrence: None)
  Receive Date: 20100429
  Receipt Date: 20100429
  Transmission Date: 20101027
  Serious: Yes (Hospitalization)
  Sender: FDA-Public Use
  Company Number: None

PATIENT
  Age: 76 Year
  Sex: Male

DRUGS (2)
  1. LAMOTRIGINE [Suspect]
     Indication: DEPRESSION
     Dosage: 200
     Dates: start: 20060413, end: 20090217
  2. ZOLPIDEM [Suspect]
     Dosage: 5
     Dates: start: 20080701

REACTIONS (7)
  - CONFUSIONAL STATE [None]
  - CONVULSION [None]
  - DEPRESSION [None]
  - HYPOTENSION [None]
  - OVERDOSE [None]
  - RESPIRATORY DISTRESS [None]
  - SUICIDAL IDEATION [None]
